FAERS Safety Report 10070054 (Version 1)
Quarter: 2014Q2

REPORT INFORMATION
  Report Type: Spontaneous
  Country: None (occurrence: None)
  Receive Date: 20140409
  Receipt Date: 20140409
  Transmission Date: 20141212
  Serious: Yes (Hospitalization)
  Sender: FDA-Public Use
  Company Number: None

PATIENT
  Age: 51 Year
  Sex: Female
  Weight: 65 kg

DRUGS (1)
  1. CELEBREX [Suspect]
     Indication: PAIN
     Route: 048
     Dates: start: 20140407

REACTIONS (2)
  - Diarrhoea [None]
  - Vomiting [None]
